FAERS Safety Report 5223920-7 (Version None)
Quarter: 2007Q1

REPORT INFORMATION
  Report Type: 
  Country: None (occurrence: None)
  Receive Date: 20070130
  Receipt Date: 20070119
  Transmission Date: 20070707
  Serious: Yes (Disabling)
  Sender: FDA-Public Use
  Company Number: US-ROCHE-262840

PATIENT
  Age: 34 Year
  Sex: Male
  Weight: 83.9 kg

DRUGS (2)
  1. LARIAM [Suspect]
     Indication: PROPHYLAXIS
     Dosage: THE PATIENT HAD TAKEN 4-5 TABLETS OF MEFLOQUINE IN TOTAL.
     Route: 048
     Dates: start: 20000325, end: 20000414
  2. VACCINE [Concomitant]
     Indication: PROPHYLAXIS
     Route: 050
     Dates: start: 20000325, end: 20000325

REACTIONS (73)
  - ABDOMINAL DISTENSION [None]
  - ABDOMINAL PAIN [None]
  - ABDOMINAL PAIN LOWER [None]
  - ABDOMINAL PAIN UPPER [None]
  - ACROPHOBIA [None]
  - ADJUSTMENT DISORDER WITH ANXIETY [None]
  - ADJUSTMENT DISORDER WITH DEPRESSED MOOD [None]
  - AMNESIA [None]
  - ANXIETY [None]
  - BACK PAIN [None]
  - BALANCE DISORDER [None]
  - BLOOD BILIRUBIN INCREASED [None]
  - BRONCHIAL HYPERREACTIVITY [None]
  - BURNING SENSATION [None]
  - CLAUSTROPHOBIA [None]
  - CONDITION AGGRAVATED [None]
  - DEPRESSION [None]
  - DIARRHOEA [None]
  - DISORIENTATION [None]
  - DISTURBANCE IN ATTENTION [None]
  - DIZZINESS [None]
  - DYSPNOEA [None]
  - EMOTIONAL DISTRESS [None]
  - EYE MOVEMENT DISORDER [None]
  - FATIGUE [None]
  - FOOD ALLERGY [None]
  - GAIT DISTURBANCE [None]
  - GENERALISED ANXIETY DISORDER [None]
  - GILBERT'S SYNDROME [None]
  - HAEMORRHOIDS [None]
  - HEADACHE [None]
  - HEART RATE INCREASED [None]
  - HEART RATE IRREGULAR [None]
  - HYPERSENSITIVITY [None]
  - HYPOAESTHESIA [None]
  - IMPETIGO [None]
  - INFECTION PARASITIC [None]
  - INJURY [None]
  - INSOMNIA [None]
  - IRRITABLE BOWEL SYNDROME [None]
  - LACTOSE INTOLERANCE [None]
  - LIPOMA [None]
  - MELANOCYTIC NAEVUS [None]
  - MENTAL DISORDER [None]
  - MIGRAINE [None]
  - MOOD DISORDER DUE TO A GENERAL MEDICAL CONDITION [None]
  - MOTION SICKNESS [None]
  - MUSCULOSKELETAL STIFFNESS [None]
  - NASAL CONGESTION [None]
  - NAUSEA [None]
  - NECK PAIN [None]
  - PALPITATIONS [None]
  - PANIC ATTACK [None]
  - PARAESTHESIA [None]
  - PHOBIA [None]
  - PHOBIA OF FLYING [None]
  - PHOTOPHOBIA [None]
  - RASH [None]
  - RHINITIS ALLERGIC [None]
  - SELF ESTEEM DECREASED [None]
  - SENSORY INTEGRATIVE DYSFUNCTION [None]
  - SINUS BRADYCARDIA [None]
  - SLEEP DISORDER [None]
  - SLEEP DISORDER DUE TO GENERAL MEDICAL CONDITION, HYPERSOMNIA TYPE [None]
  - SUICIDAL IDEATION [None]
  - THROAT IRRITATION [None]
  - TINNITUS [None]
  - TREATMENT NONCOMPLIANCE [None]
  - VERTIGO [None]
  - VESTIBULAR DISORDER [None]
  - VISUAL DISTURBANCE [None]
  - VITREOUS FLOATERS [None]
  - WEIGHT DECREASED [None]
